FAERS Safety Report 8260880-9 (Version None)
Quarter: 2012Q2

REPORT INFORMATION
  Report Type: 
  Country: None (occurrence: None)
  Receive Date: 20120402
  Receipt Date: 20120321
  Transmission Date: 20120825
  Serious: Yes (Hospitalization)
  Sender: FDA-Public Use
  Company Number: UTC-016886

PATIENT
  Age: 90 Year
  Sex: Female
  Weight: 93.2 kg

DRUGS (6)
  1. ADCIRCA [Concomitant]
  2. LISINOPRIL [Concomitant]
  3. TYVASO [Suspect]
     Indication: PULMONARY HYPERTENSION
     Dosage: 168 MCG (42 MCG, 4 IN 1 D), INHALATION
     Route: 055
     Dates: start: 20120227
  4. DIURETICS (DIURETICS) [Concomitant]
  5. DILTIAZEM [Concomitant]
  6. TRACLEER [Concomitant]

REACTIONS (2)
  - CONDITION AGGRAVATED [None]
  - DYSPNOEA [None]
